FAERS Safety Report 5957074-6 (Version None)
Quarter: 2008Q4

REPORT INFORMATION
  Report Type: 
  Country: None (occurrence: None)
  Receive Date: 20081118
  Receipt Date: 20081110
  Transmission Date: 20090506
  Serious: Yes (Other)
  Sender: FDA-Public Use
  Company Number: PHHY2008DE17809

PATIENT
  Sex: Female
  Weight: 49 kg

DRUGS (2)
  1. ESTRADERM [Suspect]
     Indication: HOT FLUSH
     Dosage: ONE PATCH EVERY 4TH DAY
     Route: 062
     Dates: start: 19910201, end: 20080701
  2. ESTRADERM [Suspect]
     Indication: HYPERHIDROSIS

REACTIONS (3)
  - EMBOLISM [None]
  - HOT FLUSH [None]
  - SKIN DISCOLOURATION [None]
